FAERS Safety Report 18742016 (Version 1)
Quarter: 2021Q1

REPORT INFORMATION
  Report Type: Other
  Country: AU (occurrence: AU)
  Receive Date: 20210114
  Receipt Date: 20210114
  Transmission Date: 20210419
  Serious: Yes (Other)
  Sender: FDA-Public Use
  Company Number: AU-NOVA LABORATORIES LIMITED-2105355

PATIENT
  Sex: Female

DRUGS (2)
  1. PURIXAN [Suspect]
     Active Substance: MERCAPTOPURINE
     Indication: COLITIS ULCERATIVE
  2. SULPHASALAZINE (SULPHASALAZINE) [Suspect]
     Active Substance: SULFASALAZINE

REACTIONS (6)
  - Drug metabolite level high [Unknown]
  - Hepatotoxicity [Unknown]
  - Hypoglycaemia [Unknown]
  - Exposure during pregnancy [None]
  - Off label use [None]
  - Cholestasis of pregnancy [Unknown]
